FAERS Safety Report 9767647 (Version 1)
Quarter: 2013Q4

REPORT INFORMATION
  Report Type: Report from Study
  Country: AU (occurrence: AU)
  Receive Date: 20131217
  Receipt Date: 20131217
  Transmission Date: 20140711
  Serious: Yes (Other)
  Sender: FDA-Public Use
  Company Number: PHHY2013AU147120

PATIENT
  Sex: Male

DRUGS (2)
  1. ACLASTA [Suspect]
     Dosage: UNK
     Route: 042
     Dates: start: 20121204
  2. ACLASTA [Suspect]
     Dosage: UNK
     Route: 042
     Dates: start: 20131209

REACTIONS (8)
  - Parkinson^s disease [Unknown]
  - Liver disorder [Unknown]
  - Blood bilirubin increased [Unknown]
  - Blood cholesterol decreased [Unknown]
  - Limb discomfort [Unknown]
  - Diarrhoea [Unknown]
  - Constipation [Unknown]
  - Headache [Unknown]
